FAERS Safety Report 5677008-1 (Version None)
Quarter: 2008Q1

REPORT INFORMATION
  Report Type: 
  Country: None (occurrence: None)
  Receive Date: 20080324
  Receipt Date: 20080313
  Transmission Date: 20080703
  Serious: Yes (Disabling, Other)
  Sender: FDA-Public Use
  Company Number: PHFR2008GB00617

PATIENT
  Age: 37 Year
  Sex: Female
  Weight: 69 kg

DRUGS (4)
  1. PENICILLIN V [Concomitant]
     Indication: SICKLE CELL ANAEMIA
     Dosage: 500MG/DAY
     Route: 048
  2. FOLIC ACID [Concomitant]
     Indication: SICKLE CELL ANAEMIA
     Dosage: 5MG PER DAY
     Route: 048
  3. CODEINE SUL TAB [Concomitant]
     Indication: SICKLE CELL ANAEMIA
     Dosage: 240MG/DAY
     Route: 048
  4. EXJADE [Suspect]
     Indication: HAEMOSIDEROSIS
     Dosage: 2 G/DAY
     Route: 048
     Dates: start: 20070605

REACTIONS (1)
  - SKIN ULCER [None]
